FAERS Safety Report 6139329-8 (Version None)
Quarter: 2009Q2

REPORT INFORMATION
  Report Type: 
  Country: None (occurrence: None)
  Receive Date: 20090401
  Receipt Date: 20090324
  Transmission Date: 20091009
  Serious: Yes (Other)
  Sender: FDA-Public Use
  Company Number: PHHY2009BR11613

PATIENT
  Age: 4 Year
  Sex: Male

DRUGS (2)
  1. ELIDEL [Suspect]
     Indication: VITILIGO
     Dosage: UNK
     Route: 061
     Dates: start: 20090317
  2. OATMEAL [Concomitant]
     Dosage: UNK

REACTIONS (1)
  - EYE IRRITATION [None]
